FAERS Safety Report 4424594-5 (Version None)
Quarter: 2004Q3

REPORT INFORMATION
  Report Type: 
  Country: None (occurrence: None)
  Receive Date: 20040809
  Receipt Date: 20040723
  Transmission Date: 20050211
  Serious: Yes (Death)
  Sender: FDA-Public Use
  Company Number: S04-GER-03466-01

PATIENT
  Age: 90 Year
  Sex: Female

DRUGS (1)
  1. CIPRALEX (ESCITALOPRAM) [Suspect]

REACTIONS (3)
  - AGITATION [None]
  - DEATH OF FRIEND [None]
  - DRUG INTERACTION [None]
